FAERS Safety Report 16354561 (Version 1)
Quarter: 2019Q2

REPORT INFORMATION
  Report Type: Spontaneous
  Country: AU (occurrence: AU)
  Receive Date: 20190524
  Receipt Date: 20190524
  Transmission Date: 20190711
  Serious: Yes (Hospitalization)
  Sender: FDA-Public Use
  Company Number: AU-MYLANLABS-2019M1049250

PATIENT
  Age: 29 Year
  Sex: Female

DRUGS (2)
  1. CLINDAMYCINE [CLINDAMYCIN] [Suspect]
     Active Substance: CLINDAMYCIN
     Indication: INFECTION
     Dosage: 1 DOSAGE FORM, QID
     Dates: start: 20190426, end: 2019
  2. INSULIN [Concomitant]
     Active Substance: INSULIN NOS
     Dosage: UNK

REACTIONS (8)
  - Loss of consciousness [Unknown]
  - Photophobia [Unknown]
  - Hyperacusis [Unknown]
  - Dizziness [Unknown]
  - Asthenia [Unknown]
  - Malaise [Unknown]
  - Disturbance in attention [Unknown]
  - Headache [Unknown]

NARRATIVE: CASE EVENT DATE: 2019
